FAERS Safety Report 5556005-0 (Version None)
Quarter: 2007Q4

REPORT INFORMATION
  Report Type: 
  Country: None (occurrence: None)
  Receive Date: 20071130
  Receipt Date: 20070720
  Transmission Date: 20080405
  Serious: No
  Sender: FDA-Public Use
  Company Number: US200706003527

PATIENT
  Age: 73 Year
  Sex: Male
  Weight: 81.6 kg

DRUGS (15)
  1. BYETTA [Suspect]
     Dosage: 5 UG, 2/D; 10 UG, 2/D,
     Dates: start: 20061201, end: 20070101
  2. BYETTA [Suspect]
     Dosage: 5 UG, 2/D; 10 UG, 2/D,
     Dates: start: 20070101, end: 20070527
  3. METFORMIN HCL [Concomitant]
  4. PRECOSE [Concomitant]
  5. PLAVIX [Concomitant]
  6. PLETAL [Concomitant]
  7. AVALIDE [Concomitant]
  8. TOPROL-XL [Concomitant]
  9. GLUCOVANCE [Concomitant]
  10. ASCORBIC ACID [Concomitant]
  11. CENTRUM (MINERALS NOS, VITAMINS NOS) [Concomitant]
  12. XANAX [Concomitant]
  13. LYRICA [Concomitant]
  14. ASPIRIN [Concomitant]
  15. VYTORIN [Concomitant]

REACTIONS (1)
  - RENAL FAILURE [None]
